FAERS Safety Report 17706671 (Version 1)
Quarter: 2020Q2

REPORT INFORMATION
  Report Type: Spontaneous
  Country: CN (occurrence: CN)
  Receive Date: 20200424
  Receipt Date: 20200424
  Transmission Date: 20200714
  Serious: Yes (Hospitalization, Other)
  Sender: FDA-Public Use
  Company Number: CN-US-PROVELL PHARMACEUTICALS LLC-E2B_90076877

PATIENT
  Age: 46 Year
  Sex: Female

DRUGS (15)
  1. THYROZOL 10 MG [Suspect]
     Active Substance: METHIMAZOLE
     Dosage: THERAPY START DATE: JAN 2019?DOSE DECREASED
     Route: 048
     Dates: end: 201906
  2. THYROZOL 10 MG [Suspect]
     Active Substance: METHIMAZOLE
     Dosage: THERAPY START DATE: JUN 2019?DOSE DECREASED
     Route: 048
     Dates: end: 2019
  3. THYROZOL 10 MG [Suspect]
     Active Substance: METHIMAZOLE
     Dosage: THERAPY START DATE: SEP 2019?DOSE INCREASED
     Route: 048
     Dates: end: 202001
  4. THYROZOL 10 MG [Suspect]
     Active Substance: METHIMAZOLE
     Dosage: THERAPY START DATE: DEC 2018?DOSE INCREASED
     Route: 048
     Dates: end: 2019
  5. EUTHYROX [Suspect]
     Active Substance: LEVOTHYROXINE SODIUM
     Dosage: THERAPY START DATE: AUG 2019?DOSE DECREASED
     Route: 048
     Dates: end: 201909
  6. THYROZOL 10 MG [Suspect]
     Active Substance: METHIMAZOLE
     Dosage: THERAPY START DATE: 03 APR 2020?DOSE INCREASED
     Route: 048
     Dates: end: 202004
  7. EUTHYROX [Suspect]
     Active Substance: LEVOTHYROXINE SODIUM
     Indication: PRODUCT USED FOR UNKNOWN INDICATION
     Dosage: THERAPY START DATE: JUN 2019
     Route: 048
     Dates: end: 2019
  8. THYROZOL 10 MG [Suspect]
     Active Substance: METHIMAZOLE
     Dosage: THERAPY START DATE: 14 JAN 2020?DOSE DECREASED
     Route: 048
     Dates: end: 202004
  9. THYROZOL 10 MG [Suspect]
     Active Substance: METHIMAZOLE
     Dosage: THERAPY START DATE: 15 APR 2020?DOSE INCREASED
     Route: 048
  10. EUTHYROX [Suspect]
     Active Substance: LEVOTHYROXINE SODIUM
     Dosage: THERAPY START DATE: 03 APR 2020?DOSE DECREASED
     Route: 048
  11. THYROZOL 10 MG [Suspect]
     Active Substance: METHIMAZOLE
     Dosage: THERAPY START DATE: JUL 2019?DOSE INCREASED
     Route: 048
     Dates: end: 2019
  12. THYROZOL 10 MG [Suspect]
     Active Substance: METHIMAZOLE
     Indication: HYPERTHYROIDISM
     Dosage: AT AN UNKNOWN DOSE
     Route: 048
     Dates: end: 201812
  13. THYROZOL 10 MG [Suspect]
     Active Substance: METHIMAZOLE
     Dosage: THERAPY START DATE: AUG 2019?DOSE DECREASED
     Route: 048
     Dates: end: 2019
  14. EUTHYROX [Suspect]
     Active Substance: LEVOTHYROXINE SODIUM
     Dosage: THERAPY START DATE: 2019?DOSE REINTRODUCED
     Route: 048
     Dates: end: 2019
  15. EUTHYROX [Suspect]
     Active Substance: LEVOTHYROXINE SODIUM
     Dosage: THERAPY START DATE: 2019?DOSE INCREASED
     Route: 048
     Dates: end: 202004

REACTIONS (10)
  - Exophthalmos [Recovering/Resolving]
  - Anti-thyroid antibody positive [Unknown]
  - Tri-iodothyronine abnormal [Recovered/Resolved]
  - Ocular hyperaemia [Recovering/Resolving]
  - Eye pain [Recovering/Resolving]
  - Eye swelling [Recovering/Resolving]
  - Intentional product misuse [Unknown]
  - Thyrotoxic crisis [Unknown]
  - Thyroxine abnormal [Not Recovered/Not Resolved]
  - Blood thyroid stimulating hormone abnormal [Not Recovered/Not Resolved]

NARRATIVE: CASE EVENT DATE: 201812
